FAERS Safety Report 8445516-6 (Version None)
Quarter: 2012Q2

REPORT INFORMATION
  Report Type: 
  Country: None (occurrence: None)
  Receive Date: 20120618
  Receipt Date: 20120607
  Transmission Date: 20120825
  Serious: Yes (Hospitalization, Disabling)
  Sender: FDA-Public Use
  Company Number: CA-MERCK-1206USA01241

PATIENT
  Sex: Female
  Weight: 68 kg

DRUGS (1)
  1. FOSAMAX PLUS D [Suspect]
     Route: 048

REACTIONS (2)
  - FRACTURE [None]
  - FEMUR FRACTURE [None]
